FAERS Safety Report 13054349 (Version 5)
Quarter: 2017Q1

REPORT INFORMATION
  Report Type: Report from Study
  Country: CN (occurrence: CN)
  Receive Date: 20161222
  Receipt Date: 20170207
  Transmission Date: 20170428
  Serious: Yes (Hospitalization)
  Sender: FDA-Public Use
  Company Number: CN-EISAI MEDICAL RESEARCH-EC-2016-023551

PATIENT
  Age: 53 Year
  Sex: Male
  Weight: 50.3 kg

DRUGS (7)
  1. GLYCYRRHIZIN [Concomitant]
     Active Substance: GLYCYRRHIZIN
  2. GLUTATHION [Concomitant]
  3. URSODEOXYCHOLIC ACID [Concomitant]
     Active Substance: URSODIOL
  4. AMBROXOL [Concomitant]
     Active Substance: AMBROXOL
  5. ENTECAVIR. [Concomitant]
     Active Substance: ENTECAVIR
  6. CODEINE [Concomitant]
     Active Substance: CODEINE
  7. LENVATINIB [Suspect]
     Active Substance: LENVATINIB
     Indication: HEPATOCELLULAR CARCINOMA
     Route: 048
     Dates: start: 20161117, end: 20161213

REACTIONS (1)
  - Decreased appetite [Recovered/Resolved]

NARRATIVE: CASE EVENT DATE: 20161214
